FAERS Safety Report 24882030 (Version 1)
Quarter: 2025Q1

REPORT INFORMATION
  Report Type: Spontaneous
  Country: CN (occurrence: CN)
  Receive Date: 20250124
  Receipt Date: 20250124
  Transmission Date: 20250408
  Serious: Yes (Other)
  Sender: AMGEN
  Company Number: CN-AMGEN-CHNSP2025012511

PATIENT
  Age: 46 Year
  Sex: Male
  Weight: 54 kg

DRUGS (4)
  1. XGEVA [Suspect]
     Active Substance: DENOSUMAB
     Indication: Nasopharyngeal cancer
     Dosage: 120 MILLIGRAM, QD
     Route: 058
     Dates: start: 20241216, end: 20241216
  2. GEMCITABINE HYDROCHLORIDE [Suspect]
     Active Substance: GEMCITABINE HYDROCHLORIDE
     Indication: Nasopharyngeal cancer
     Dosage: 1.58 GRAM, QD (DRIP)
     Route: 040
     Dates: start: 20241213, end: 20241213
  3. TORIPALIMAB [Suspect]
     Active Substance: TORIPALIMAB
     Indication: Nasopharyngeal cancer
     Dosage: 240 MILLIGRAM, QD (DRIP)
     Route: 040
     Dates: start: 20241212, end: 20241212
  4. CISPLATIN [Suspect]
     Active Substance: CISPLATIN
     Indication: Nasopharyngeal cancer
     Dosage: 42 MILLIGRAM, QD
     Route: 040

REACTIONS (2)
  - White blood cell count decreased [Unknown]
  - Neutrophil count decreased [Unknown]

NARRATIVE: CASE EVENT DATE: 20241218
